FAERS Safety Report 4578007-3 (Version None)
Quarter: 2005Q1

REPORT INFORMATION
  Report Type: 
  Country: None (occurrence: None)
  Receive Date: 20050209
  Receipt Date: 20050126
  Transmission Date: 20050727
  Serious: Yes (Hospitalization, Other)
  Sender: FDA-Public Use
  Company Number: 2005023244

PATIENT
  Sex: Male

DRUGS (2)
  1. CELEBREX [Suspect]
     Indication: ARTHRITIS
     Dosage: 400 MG (1 D), ORAL
     Route: 048
     Dates: start: 19990101, end: 20040101
  2. ALL OTEHR THERAPEUTIC PRODUCTS (ALL OTHER THERAPEUTIC PRODUCTS) [Concomitant]

REACTIONS (5)
  - ARRHYTHMIA [None]
  - CARDIOVASCULAR DISORDER [None]
  - COLONIC POLYP [None]
  - HEART RATE INCREASED [None]
  - MYOCARDIAL INFARCTION [None]
